FAERS Safety Report 4761433-7 (Version None)
Quarter: 2005Q3

REPORT INFORMATION
  Report Type: 
  Country: None (occurrence: None)
  Receive Date: 20050901
  Receipt Date: 20050901
  Transmission Date: 20060218
  Serious: Yes (Hospitalization)
  Sender: FDA-Public Use
  Company Number: None

PATIENT
  Age: 67 Year
  Sex: Female
  Weight: 77.1115 kg

DRUGS (8)
  1. SPORANOX [Suspect]
     Indication: BLASTOMYCOSIS
     Dosage: 200MG TWICE DAILY PO
     Route: 048
     Dates: start: 20050504, end: 20050608
  2. ZOCOR [Suspect]
     Indication: HYPERCHOLESTEROLAEMIA
     Dosage: 80MG DAILY PO
     Route: 048
  3. ZANTAC [Concomitant]
  4. NORVASC [Concomitant]
  5. TORSEMIDE [Concomitant]
  6. POTASSIUM CHLORIDE [Concomitant]
  7. FOSAMAX [Concomitant]
  8. DIOVAN [Concomitant]

REACTIONS (6)
  - BACK PAIN [None]
  - FLANK PAIN [None]
  - HAEMATURIA [None]
  - MYOPATHY [None]
  - RHABDOMYOLYSIS [None]
  - URINARY TRACT INFECTION [None]
